FAERS Safety Report 24648373 (Version 2)
Quarter: 2024Q4

REPORT INFORMATION
  Report Type: Spontaneous
  Country: US (occurrence: US)
  Receive Date: 20241121
  Receipt Date: 20241220
  Transmission Date: 20250114
  Serious: Yes (Other)
  Sender: ABBVIE
  Company Number: US-ABBVIE-6005872

PATIENT
  Age: 40 Year
  Sex: Female
  Weight: 42 kg

DRUGS (17)
  1. CREON [Suspect]
     Active Substance: PANCRELIPASE AMYLASE\PANCRELIPASE LIPASE\PANCRELIPASE PROTEASE
     Indication: Cystic fibrosis
     Dosage: FIRST ADMIN DATE MORE THAN 5 YEARS AGO
     Route: 048
  2. CREON [Suspect]
     Active Substance: PANCRELIPASE AMYLASE\PANCRELIPASE LIPASE\PANCRELIPASE PROTEASE
     Indication: Cystic fibrosis
     Dosage: 24000 TO 76000 UNIT?2 - 6 CAPSULES UPTO 5 TIMES PER DAY WITH MEALS AND SNACKS
     Route: 048
     Dates: start: 20241109, end: 20241111
  3. CREON [Suspect]
     Active Substance: PANCRELIPASE AMYLASE\PANCRELIPASE LIPASE\PANCRELIPASE PROTEASE
     Indication: Cystic fibrosis
     Dosage: DOSE ADJUSTED/OLDER SUPPLY WITH SMALLER GRANULES
     Route: 048
  4. LEVALBUTEROL TARTRATE [Concomitant]
     Active Substance: LEVALBUTEROL TARTRATE
     Indication: Product used for unknown indication
     Dosage: 45 MCG/ACT INHALATION?INHALE 1 TO 2 PUFFS EVERY 4 TO 6 HOURS AS NEEDED.?AEROSOL?3 X 15 GM INHALER
  5. MIRENA [Concomitant]
     Active Substance: LEVONORGESTREL
     Indication: Product used for unknown indication
     Dosage: (52 MG) 20 MCG/DAY INTRAUTERINE
  6. MONTELUKAST SODIUM [Concomitant]
     Active Substance: MONTELUKAST\MONTELUKAST SODIUM
     Indication: Product used for unknown indication
     Dosage: 10 MG ORAL TABLET?TAKE 1 TABLET BY MOUTH EVERYDAY AT BEDTIME
     Route: 048
     Dates: start: 20241203
  7. SODIUM CHLORIDE [Concomitant]
     Active Substance: SODIUM CHLORIDE
     Indication: Product used for unknown indication
     Dosage: 0.9% INHALATION NEBULIZATION SOLUTION?3-6 ML BY NEB BID?6 30 X 3 ML PLAS COUNT
     Dates: start: 19900101
  8. TRIKAFTA [Concomitant]
     Active Substance: ELEXACAFTOR\IVACAFTOR\TEZACAFTOR
     Indication: Product used for unknown indication
     Dosage: 100-50-75 + 150 MG ORAL TABLET THERAPY PACK?TAKE 2 ORANGE TABLETS IN THE MORNING AND 1 BLUE TABLE...
     Route: 048
     Dates: start: 20220608
  9. VANCOMYCIN [Concomitant]
     Active Substance: VANCOMYCIN
     Indication: Product used for unknown indication
     Dosage: HCI?ONE CAPSULE EVERY 12 HOURS FOR TWO WEEKS TO START WITH INITIATION OF IV ANTIBIOTICS
     Route: 048
     Dates: start: 20220907
  10. ZITHROMAX [Concomitant]
     Active Substance: AZITHROMYCIN DIHYDRATE
     Indication: Product used for unknown indication
     Dosage: TAKE ONE TABLET BY MOUTH THREE TIMES PER WEEK (MONDAY, WEDNESDAY, FRIDAY)
     Route: 048
     Dates: start: 20230929
  11. FLUTICASONE PROPIONATE\SALMETEROL XINAFOATE [Concomitant]
     Active Substance: FLUTICASONE PROPIONATE\SALMETEROL XINAFOATE
     Indication: Product used for unknown indication
     Dosage: INHALATION AEROSOL POWDER BREATH ACTIVATED?INHALE 1 PUFF BY MOUTH EVERY 12 HOURS
     Dates: start: 20241203
  12. HYDROCORTISONE [Concomitant]
     Active Substance: HYDROCORTISONE
     Indication: Product used for unknown indication
     Dosage: 2.5% EXTERNAL CREAM?APPLY TO AFFECTED AREA TWICE DAILY AS DIRECTED
  13. HYDROXYZINE [Concomitant]
     Active Substance: HYDROXYZINE HYDROCHLORIDE
     Indication: Pruritus
     Dosage: HCI-25 MG ORAL TABLET?ONE TABLET BY MOUTH 30 MINUTES BEFORE EACH IV COLISTIN DOSE PRE MED FOR PRU...
     Route: 048
     Dates: start: 20220907
  14. COLISTIN [Concomitant]
     Active Substance: COLISTIN
     Indication: Pruritus
     Dosage: IV COLISTIN DOSE PRE MED
  15. INSULIN ASPART [Concomitant]
     Active Substance: INSULIN ASPART
     Indication: Product used for unknown indication
     Dosage: 100 UNIT/ML?INJECT SUBCUTANEOUSLY AS DIRECTED
     Route: 058
  16. PHYTONADIONE [Concomitant]
     Active Substance: PHYTONADIONE
     Indication: Haemoptysis
     Dosage: TAKE ONE TABLET BY MOUTH TWO TIMES DAILY AS NEEDED. NOTIFY OFFICE BEFORE STARTING.
     Route: 048
     Dates: start: 20241106
  17. WIXELA INHUB [Concomitant]
     Active Substance: FLUTICASONE PROPIONATE\SALMETEROL XINAFOATE
     Indication: Product used for unknown indication
     Dosage: 250-50 MCG/ACT INHALATION?ACROSOL POWDER BREATH ACTIVATED?TAKE 1 PUFF BY MOUTH EVERY 12 HOURS
     Dates: start: 20231120

REACTIONS (4)
  - Pancreatic failure [Unknown]
  - Diarrhoea [Unknown]
  - Gastrointestinal motility disorder [Unknown]
  - Drug ineffective [Unknown]

NARRATIVE: CASE EVENT DATE: 20240101
